FAERS Safety Report 10163575 (Version 1)
Quarter: 2014Q2

REPORT INFORMATION
  Report Type: Spontaneous
  Country: FR (occurrence: FR)
  Receive Date: 20140509
  Receipt Date: 20140509
  Transmission Date: 20141212
  Serious: Yes (Death, Life-Threatening, Hospitalization)
  Sender: FDA-Public Use
  Company Number: FR-ASTRAZENECA-2014SE31000

PATIENT
  Age: 59 Year
  Sex: Male

DRUGS (4)
  1. XEROQUEL [Suspect]
     Indication: BIPOLAR DISORDER
     Route: 048
     Dates: start: 201203
  2. XEROQUEL [Suspect]
     Indication: BIPOLAR DISORDER
     Route: 048
  3. XEROQUEL [Suspect]
     Indication: BIPOLAR DISORDER
     Route: 048
  4. XEROQUEL [Suspect]
     Indication: BIPOLAR DISORDER
     Route: 048

REACTIONS (3)
  - Death [Fatal]
  - Cardio-respiratory arrest [Unknown]
  - Epilepsy [Unknown]
